FAERS Safety Report 6891459-9 (Version None)
Quarter: 2010Q3

REPORT INFORMATION
  Report Type: 
  Country: None (occurrence: None)
  Receive Date: 20100731
  Receipt Date: 20070711
  Transmission Date: 20110219
  Serious: No
  Sender: FDA-Public Use
  Company Number: US-PFIZER INC-2007056940

PATIENT
  Sex: Male
  Weight: 87.727 kg

DRUGS (5)
  1. AMLODIPINE [Suspect]
     Indication: HYPERTENSION
     Dates: start: 20070709
  2. NORVASC [Suspect]
     Indication: HYPERTENSION
     Dates: start: 19970101
  3. LIPITOR [Concomitant]
  4. ATENOLOL [Concomitant]
  5. FRUSEMIDE [Concomitant]

REACTIONS (2)
  - CHOKING [None]
  - THROAT IRRITATION [None]
